FAERS Safety Report 8381267-4 (Version None)
Quarter: 2012Q2

REPORT INFORMATION
  Report Type: 
  Country: None (occurrence: None)
  Receive Date: 20120504
  Receipt Date: 20120430
  Transmission Date: 20120825
  Serious: Yes (Other)
  Sender: FDA-Public Use
  Company Number: 2012032022

PATIENT
  Sex: Male

DRUGS (1)
  1. PRIVIGEN [Suspect]
     Indication: NEUROPATHY PERIPHERAL

REACTIONS (5)
  - OFF LABEL USE [None]
  - MALAISE [None]
  - INTRAVASCULAR HAEMOLYSIS [None]
  - NAUSEA [None]
  - HAEMOLYTIC ANAEMIA [None]
